FAERS Safety Report 16674207 (Version 2)
Quarter: 2019Q3

REPORT INFORMATION
  Report Type: Spontaneous
  Country: JP (occurrence: JP)
  Receive Date: 20190806
  Receipt Date: 20190903
  Transmission Date: 20191004
  Serious: Yes (Hospitalization)
  Sender: FDA-Public Use
  Company Number: PHJP2019JP003664

PATIENT
  Age: 68 Year
  Sex: Female
  Weight: 45.5 kg

DRUGS (2)
  1. CELTECT [Concomitant]
     Active Substance: OXATOMIDE
     Indication: URTICARIA CHRONIC
     Dosage: 30 MG, BID
     Route: 065
  2. TEGRETOL [Suspect]
     Active Substance: CARBAMAZEPINE
     Indication: TRIGEMINAL NEURALGIA
     Dosage: 100 MG, BID
     Route: 048
     Dates: start: 20080919, end: 20081022

REACTIONS (10)
  - Eczema [Unknown]
  - Erythema [Unknown]
  - Skin degenerative disorder [Unknown]
  - Epidermal necrosis [Unknown]
  - Red blood cell abnormality [Unknown]
  - Drug reaction with eosinophilia and systemic symptoms [Recovering/Resolving]
  - Papule [Unknown]
  - Eosinophilia [Unknown]
  - Roseolovirus test positive [Unknown]
  - Rash pustular [Unknown]

NARRATIVE: CASE EVENT DATE: 20081007
